FAERS Safety Report 14891950 (Version 1)
Quarter: 2018Q2

REPORT INFORMATION
  Report Type: Spontaneous
  Country: FR (occurrence: FR)
  Receive Date: 20180514
  Receipt Date: 20180514
  Transmission Date: 20180711
  Serious: Yes (Hospitalization)
  Sender: FDA-Public Use
  Company Number: FR-JNJFOC-20180511206

PATIENT
  Age: 16 Year
  Sex: Male
  Weight: 53 kg

DRUGS (1)
  1. RISPERDAL [Suspect]
     Active Substance: RISPERIDONE
     Indication: WRONG DRUG ADMINISTERED
     Route: 048
     Dates: start: 20180424, end: 20180424

REACTIONS (4)
  - Depressed level of consciousness [Recovered/Resolved]
  - Extrapyramidal disorder [Recovered/Resolved]
  - Wrong drug administered [Unknown]
  - Somnolence [Recovered/Resolved]

NARRATIVE: CASE EVENT DATE: 20180424
